FAERS Safety Report 4530682-5 (Version None)
Quarter: 2004Q4

REPORT INFORMATION
  Report Type: 
  Country: None (occurrence: None)
  Receive Date: 20041216
  Receipt Date: 20041203
  Transmission Date: 20050328
  Serious: Yes (Other)
  Sender: FDA-Public Use
  Company Number: 2004103872

PATIENT
  Age: 78 Year
  Sex: Male
  Weight: 65 kg

DRUGS (12)
  1. FLUCONAZOLE [Suspect]
     Indication: CANDIDIASIS
     Dosage: 400 MG, ORAL
     Route: 048
     Dates: start: 20041101, end: 20041101
  2. NEFOPAM HYDROCHLORIDE (NEFOPAM HYDROCHLORIDE) [Suspect]
     Indication: PAIN
     Dosage: INTRAVENOUS
     Route: 042
     Dates: start: 20041117, end: 20041118
  3. TIENAM (CILASTATIN, IMIPENEM) [Concomitant]
  4. AMIKACIN [Concomitant]
  5. ALL OTHER THERAPEUTIC PRODUCTS (ALL OTHER THERAPEUTIC PRODUCTS) [Concomitant]
  6. HEPARIN-FRACTION, SODIUM SALT (HEPARIN-FRACTION, SODIUM SALT) [Concomitant]
  7. OMEPRAZOLE [Concomitant]
  8. METRONIDAZOLE [Concomitant]
  9. AMBROXOL (AMBROXOL) [Concomitant]
  10. LOPERAMIDE HCL [Concomitant]
  11. FERROUS SULFATE TAB [Concomitant]
  12. ACETAMINOPHEN [Concomitant]

REACTIONS (6)
  - CANDIDA SEPSIS [None]
  - CHILLS [None]
  - DERMATITIS EXFOLIATIVE [None]
  - PAIN [None]
  - TACHYCARDIA [None]
  - TOXIC SKIN ERUPTION [None]
